FAERS Safety Report 18315978 (Version 2)
Quarter: 2021Q4

REPORT INFORMATION
  Report Type: Other
  Country: CA (occurrence: CA)
  Receive Date: 20200927
  Receipt Date: 20211026
  Transmission Date: 20220303
  Serious: Yes (Death)
  Sender: FDA-Public Use
  Company Number: CA-CELLTRION INC.-2020CA026941

PATIENT

DRUGS (24)
  1. RITUXIMAB [Suspect]
     Active Substance: RITUXIMAB
     Indication: Rheumatoid arthritis
     Dosage: UNK
     Route: 042
  2. RITUXIMAB [Suspect]
     Active Substance: RITUXIMAB
     Dosage: 1000.0 MILLIGRAM
     Route: 042
  3. LEFLUNOMIDE [Suspect]
     Active Substance: LEFLUNOMIDE
     Indication: Product used for unknown indication
     Dosage: UNK
     Route: 065
  4. LEFLUNOMIDE [Suspect]
     Active Substance: LEFLUNOMIDE
     Dosage: UNK
     Route: 065
  5. METHOTREXATE [Suspect]
     Active Substance: METHOTREXATE
     Indication: Product used for unknown indication
     Route: 065
  6. REMICADE [Suspect]
     Active Substance: INFLIXIMAB
     Indication: Product used for unknown indication
     Route: 065
  7. ACETAMINOPHEN [Concomitant]
     Active Substance: ACETAMINOPHEN
     Dosage: 650.0 MILLIGRAM
     Route: 048
  8. ACETAMINOPHEN [Concomitant]
     Active Substance: ACETAMINOPHEN
     Dosage: 1000.0 MILLIGRAM
     Route: 048
  9. ACETAMINOPHEN [Concomitant]
     Active Substance: ACETAMINOPHEN
     Dosage: 1000.0 MILLIGRAM
     Route: 048
  10. ALTACE [Concomitant]
     Active Substance: RAMIPRIL
     Route: 065
  11. ASPIRIN [Concomitant]
     Active Substance: ASPIRIN
     Route: 065
  12. ATORVASTATIN [Concomitant]
     Active Substance: ATORVASTATIN
     Route: 065
  13. CAFFEINE [Concomitant]
     Active Substance: CAFFEINE
  14. CITALOPRAM [Concomitant]
     Active Substance: CITALOPRAM HYDROBROMIDE
  15. DIPHENHYDRAMINE [Concomitant]
     Active Substance: DIPHENHYDRAMINE
     Dosage: 50.0 MILLIGRAM
     Route: 048
  16. LIPITOR [Concomitant]
     Active Substance: ATORVASTATIN CALCIUM
     Route: 065
  17. METHYLPREDNISOLONE [Concomitant]
     Active Substance: METHYLPREDNISOLONE
     Dosage: 100.0 MILLIGRAM
     Route: 042
  18. METOPROLOL [Concomitant]
     Active Substance: METOPROLOL
  19. NEXIUM [Concomitant]
     Active Substance: ESOMEPRAZOLE MAGNESIUM
  20. OXYCODONE [Concomitant]
     Active Substance: OXYCODONE
  21. RAMIPRIL [Concomitant]
     Active Substance: RAMIPRIL
  22. RISPERIDONE [Concomitant]
     Active Substance: RISPERIDONE
     Route: 065
  23. ATIVAN [Concomitant]
     Active Substance: LORAZEPAM
  24. SOLIFENACIN [Concomitant]
     Active Substance: SOLIFENACIN

REACTIONS (17)
  - Death [Fatal]
  - Diverticulum [Fatal]
  - Lung disorder [Fatal]
  - Malaise [Fatal]
  - Prostatic disorder [Fatal]
  - Prostatomegaly [Fatal]
  - Rheumatoid arthritis [Fatal]
  - Weight increased [Fatal]
  - Diarrhoea [Fatal]
  - Cough [Fatal]
  - Gastrooesophageal reflux disease [Fatal]
  - Oxygen saturation decreased [Fatal]
  - Pulmonary oedema [Fatal]
  - Rales [Fatal]
  - Influenza [Fatal]
  - Pneumonia [Fatal]
  - Wheezing [Fatal]
